FAERS Safety Report 12936938 (Version 1)
Quarter: 2016Q4

REPORT INFORMATION
  Report Type: Spontaneous
  Country: DE (occurrence: DE)
  Receive Date: 20161114
  Receipt Date: 20161114
  Transmission Date: 20170207
  Serious: Yes (Death, Other)
  Sender: FDA-Public Use
  Company Number: DE-CORDEN PHARMA LATINA S.P.A.-DE-2016COR000240

PATIENT
  Age: 63 Year
  Sex: Female

DRUGS (2)
  1. ETOPOSIDE. [Suspect]
     Active Substance: ETOPOSIDE
     Indication: LUNG CANCER METASTATIC
     Dosage: 100 MG/M2 KOF, 100%
  2. CISPLATIN. [Suspect]
     Active Substance: CISPLATIN
     Indication: LUNG CANCER METASTATIC
     Dosage: 75 MG/M2 KOF, 100%

REACTIONS (5)
  - Cytomegalovirus infection [Fatal]
  - Disorientation [Unknown]
  - Coma [Unknown]
  - Febrile neutropenia [Recovering/Resolving]
  - Thrombocytopenia [Unknown]
